FAERS Safety Report 6827717-3 (Version None)
Quarter: 2010Q3

REPORT INFORMATION
  Report Type: 
  Country: None (occurrence: None)
  Receive Date: 20100709
  Receipt Date: 20070125
  Transmission Date: 20110219
  Serious: No
  Sender: FDA-Public Use
  Company Number: US-PFIZER INC-2007007220

PATIENT
  Sex: Female
  Weight: 80.74 kg

DRUGS (8)
  1. CHANTIX [Suspect]
     Indication: SMOKING CESSATION THERAPY
     Dates: start: 20061201, end: 20070101
  2. ALDACTONE [Concomitant]
  3. LEXAPRO [Concomitant]
  4. SLOW-MAG [Concomitant]
  5. POTASSIUM [Concomitant]
  6. LIPITOR [Concomitant]
  7. ZETIA [Concomitant]
  8. ALTACE [Concomitant]

REACTIONS (3)
  - FEELING ABNORMAL [None]
  - IRRITABILITY [None]
  - NAUSEA [None]
